FAERS Safety Report 8840838 (Version 2)
Quarter: 2012Q4

REPORT INFORMATION
  Report Type: 
  Country: IE (occurrence: IE)
  Receive Date: 20121015
  Receipt Date: 20121122
  Transmission Date: 20130627
  Serious: Yes (Other)
  Sender: FDA-Public Use
  Company Number: PHHY2012IE090668

PATIENT
  Sex: Male

DRUGS (1)
  1. RITALIN LA [Suspect]
     Indication: ATTENTION DEFICIT/HYPERACTIVITY DISORDER
     Dosage: 20 mg, Daily
     Route: 048
     Dates: start: 201012

REACTIONS (2)
  - Type 1 diabetes mellitus [Recovered/Resolved with Sequelae]
  - Drug dispensing error [Unknown]
